FAERS Safety Report 19368431 (Version 1)
Quarter: 2021Q2

REPORT INFORMATION
  Report Type: Spontaneous
  Country: US (occurrence: US)
  Receive Date: 20210602
  Receipt Date: 20210602
  Transmission Date: 20210717
  Serious: Yes (Hospitalization, Other)
  Sender: FDA-Public Use
  Company Number: US-ANIPHARMA-2021-US-010762

PATIENT
  Age: 67 Year
  Sex: Male

DRUGS (5)
  1. TOPIRAMATE. [Suspect]
     Active Substance: TOPIRAMATE
     Indication: FOCAL DYSCOGNITIVE SEIZURES
     Dosage: 50 MG TWICE DAILY
  2. LEVETIRACETAM. [Suspect]
     Active Substance: LEVETIRACETAM
     Indication: FOCAL DYSCOGNITIVE SEIZURES
     Dosage: 1000 MG TWICE DAILY
  3. CARBIDOPA AND LEVODOPA [Concomitant]
     Active Substance: CARBIDOPA\LEVODOPA
     Dosage: 25 MG + 100 MG 3 TIMES DAILY
  4. LAMOTRIGINE. [Suspect]
     Active Substance: LAMOTRIGINE
     Indication: FOCAL DYSCOGNITIVE SEIZURES
     Dosage: 200 MG TWICE DAILY
  5. ZONISAMIDE (NON?SPECIFIC) [Suspect]
     Active Substance: ZONISAMIDE
     Indication: FOCAL DYSCOGNITIVE SEIZURES

REACTIONS (2)
  - Hypocalcaemia [Recovered/Resolved]
  - Vitamin D deficiency [Recovered/Resolved]
